FAERS Safety Report 10570797 (Version 2)
Quarter: 2014Q4

REPORT INFORMATION
  Report Type: Spontaneous
  Country: IT (occurrence: IT)
  Receive Date: 20141107
  Receipt Date: 20141107
  Transmission Date: 20150529
  Serious: Yes (Other)
  Sender: FDA-Public Use
  Company Number: IT-ASTELLAS-2014US015932

PATIENT
  Sex: Male

DRUGS (2)
  1. VESIKER [Suspect]
     Active Substance: SOLIFENACIN
     Route: 065
     Dates: end: 2013
  2. VESIKER [Suspect]
     Active Substance: SOLIFENACIN
     Indication: PRODUCT USED FOR UNKNOWN INDICATION
     Route: 048
     Dates: start: 2008

REACTIONS (4)
  - Dizziness [Recovered/Resolved]
  - Therapeutic response decreased [Recovered/Resolved]
  - Prostatic disorder [Unknown]
  - Constipation [Recovered/Resolved]

NARRATIVE: CASE EVENT DATE: 2008
